FAERS Safety Report 12876088 (Version 1)
Quarter: 2016Q4

REPORT INFORMATION
  Report Type: Spontaneous
  Country: US (occurrence: US)
  Receive Date: 20161024
  Receipt Date: 20161024
  Transmission Date: 20170207
  Serious: No
  Sender: FDA-Public Use
  Company Number: US-JAZZ-2016-US-015289

PATIENT
  Sex: Male

DRUGS (22)
  1. XYREM [Suspect]
     Active Substance: SODIUM OXYBATE
     Indication: NARCOLEPSY
     Dosage: 3 G, BID
     Route: 048
     Dates: start: 201506
  2. CYMBALTA [Concomitant]
     Active Substance: DULOXETINE HYDROCHLORIDE
  3. METHADONE HCL [Concomitant]
     Active Substance: METHADONE HYDROCHLORIDE
  4. TOPAMAX [Concomitant]
     Active Substance: TOPIRAMATE
  5. XYREM [Suspect]
     Active Substance: SODIUM OXYBATE
     Indication: CATAPLEXY
  6. AMARYL [Concomitant]
     Active Substance: GLIMEPIRIDE
  7. CLONAZEPAM. [Concomitant]
     Active Substance: CLONAZEPAM
  8. CLONIDINE HCL [Concomitant]
     Active Substance: CLONIDINE HYDROCHLORIDE
  9. SYNTHROID [Concomitant]
     Active Substance: LEVOTHYROXINE SODIUM
  10. HYDROXYZINE HCL [Concomitant]
     Active Substance: HYDROXYZINE HYDROCHLORIDE
  11. LYRICA [Concomitant]
     Active Substance: PREGABALIN
  12. LANTUS [Concomitant]
     Active Substance: INSULIN GLARGINE
  13. BACLOFEN. [Concomitant]
     Active Substance: BACLOFEN
  14. MELOXICAM. [Suspect]
     Active Substance: MELOXICAM
     Indication: PRODUCT USED FOR UNKNOWN INDICATION
     Route: 048
  15. IBUPROFEN. [Suspect]
     Active Substance: IBUPROFEN
     Indication: PRODUCT USED FOR UNKNOWN INDICATION
     Route: 048
  16. NOVOLOG [Concomitant]
     Active Substance: INSULIN ASPART
  17. NUVIGIL [Concomitant]
     Active Substance: ARMODAFINIL
  18. FLEXERIL [Concomitant]
     Active Substance: CYCLOBENZAPRINE HYDROCHLORIDE
  19. KLONOPIN [Concomitant]
     Active Substance: CLONAZEPAM
  20. MEDROL [Concomitant]
     Active Substance: METHYLPREDNISOLONE
  21. TORADOL [Concomitant]
     Active Substance: KETOROLAC TROMETHAMINE
     Indication: CATAPLEXY
  22. TORADOL [Concomitant]
     Active Substance: KETOROLAC TROMETHAMINE
     Indication: NARCOLEPSY
     Dosage: 3 G, BID
     Route: 048
     Dates: start: 201506

REACTIONS (2)
  - Malaise [Unknown]
  - Abdominal pain upper [Not Recovered/Not Resolved]
